FAERS Safety Report 11798290 (Version 1)
Quarter: 2015Q4

REPORT INFORMATION
  Report Type: Spontaneous
  Country: US (occurrence: US)
  Receive Date: 20151203
  Receipt Date: 20151203
  Transmission Date: 20160305
  Serious: No
  Sender: FDA-Public Use
  Company Number: US-REGENERON PHARMACEUTICALS, INC.-2015-10842

PATIENT

DRUGS (1)
  1. EYLEA [Suspect]
     Active Substance: AFLIBERCEPT
     Indication: PRODUCT USED FOR UNKNOWN INDICATION
     Dosage: UNK
     Dates: start: 20150226

REACTIONS (7)
  - Puncture site erythema [Recovering/Resolving]
  - Puncture site haemorrhage [Recovering/Resolving]
  - Hypoaesthesia [Recovering/Resolving]
  - Puncture site swelling [Recovering/Resolving]
  - Injury associated with device [Recovering/Resolving]
  - Puncture site pain [Recovering/Resolving]
  - Pallor [Recovering/Resolving]

NARRATIVE: CASE EVENT DATE: 20140227
